FAERS Safety Report 4909897-X (Version None)
Quarter: 2006Q1

REPORT INFORMATION
  Report Type: 
  Country: None (occurrence: None)
  Receive Date: 20060208
  Receipt Date: 20060126
  Transmission Date: 20060701
  Serious: Yes (Death)
  Sender: FDA-Public Use
  Company Number: HQWYE537927JAN06

PATIENT
  Age: 18 Year
  Sex: Male

DRUGS (1)
  1. EFFEXOR XR [Suspect]
     Indication: DEPRESSION
     Dosage: 150 MG 1X PER 1 DAY, ORAL
     Route: 048
     Dates: start: 20051008, end: 20051108

REACTIONS (3)
  - BACK PAIN [None]
  - DRUG TOXICITY [None]
  - NEPHROLITHIASIS [None]
